FAERS Safety Report 4826870-0 (Version None)
Quarter: 2005Q4

REPORT INFORMATION
  Report Type: 
  Country: None (occurrence: None)
  Receive Date: 20051114
  Receipt Date: 20051031
  Transmission Date: 20060501
  Serious: Yes (Hospitalization)
  Sender: FDA-Public Use
  Company Number: US-JNJFOC-20051100539

PATIENT
  Sex: Female
  Weight: 73.03 kg

DRUGS (2)
  1. DURAGESIC-100 [Suspect]
     Route: 062
     Dates: start: 20000903, end: 20041004
  2. ZOLOFT [Concomitant]
     Indication: DEPRESSION

REACTIONS (4)
  - APPLICATION SITE DERMATITIS [None]
  - BREAST CANCER [None]
  - DEPRESSION [None]
  - MENTAL DISORDER [None]
